FAERS Safety Report 16984342 (Version 2)
Quarter: 2024Q3

REPORT INFORMATION
  Report Type: Spontaneous
  Country: US (occurrence: None)
  Receive Date: 20191101
  Receipt Date: 20240906
  Transmission Date: 20241017
  Serious: No
  Sender: DOMPE FARMACEUTICI
  Company Number: US-FARMAPROD-201904-0628

PATIENT
  Age: 72 Year
  Sex: Female
  Weight: 58.967 kg

DRUGS (12)
  1. OXERVATE [Suspect]
     Active Substance: CENEGERMIN-BKBJ
     Indication: Neurotrophic keratopathy
     Route: 047
     Dates: start: 20190419, end: 20190612
  2. OXERVATE [Suspect]
     Active Substance: CENEGERMIN-BKBJ
     Route: 047
     Dates: start: 20190705, end: 20190831
  3. OXERVATE [Suspect]
     Active Substance: CENEGERMIN-BKBJ
  4. CALCIUM [Concomitant]
     Active Substance: CALCIUM
     Indication: Product used for unknown indication
  5. DOXYCYCLINE [Concomitant]
     Active Substance: DOXYCYCLINE\DOXYCYCLINE HYCLATE
     Indication: Product used for unknown indication
  6. VITAMIN B 100 COMPLEX [Concomitant]
     Indication: Product used for unknown indication
  7. FISH OIL [Concomitant]
     Active Substance: FISH OIL
     Indication: Product used for unknown indication
  8. VITAMINS [Concomitant]
     Active Substance: VITAMINS
     Indication: Product used for unknown indication
  9. FAMCICLOVIR [Concomitant]
     Active Substance: FAMCICLOVIR
     Indication: Product used for unknown indication
  10. ARTIFICIAL TEARS [Concomitant]
     Dosage: 0.1%-0.3%
  11. ERYTHROMYCIN [Concomitant]
     Active Substance: ERYTHROMYCIN
  12. ACYCLOVIR [Concomitant]
     Active Substance: ACYCLOVIR

REACTIONS (9)
  - Vision blurred [Not Recovered/Not Resolved]
  - Diplopia [Unknown]
  - Eye pain [Recovered/Resolved]
  - Visual impairment [Unknown]
  - Eye irritation [Recovered/Resolved]
  - Therapy interrupted [Unknown]
  - Underdose [Unknown]
  - Nasopharyngitis [Not Recovered/Not Resolved]
  - Therapy non-responder [Unknown]
